FAERS Safety Report 8182092-X (Version None)
Quarter: 2012Q1

REPORT INFORMATION
  Report Type: 
  Country: None (occurrence: None)
  Receive Date: 20120302
  Receipt Date: 20120223
  Transmission Date: 20120608
  Serious: Yes (Hospitalization)
  Sender: FDA-Public Use
  Company Number: PHHY2012BE003531

PATIENT
  Sex: Female

DRUGS (12)
  1. DIURETICS [Concomitant]
  2. LEVOTHYROXINE SODIUM [Concomitant]
     Indication: HYPOTHYROIDISM
     Dosage: 0.2 MG/DAILY
  3. RASILEZ [Suspect]
     Indication: HYPERTENSION
     Dosage: 300 MG/DAILY
     Route: 048
  4. ACE INHIBITOR NOS [Concomitant]
  5. MOXON [Concomitant]
     Indication: HYPERTENSION
     Dosage: 0.4 MG/DAILY
  6. MODURETIC 5-50 [Concomitant]
     Indication: HYPERTENSION
     Dates: start: 20100401, end: 20100515
  7. TEGRETOL [Concomitant]
     Dosage: 200 MG, TID
  8. SIMVASTATIN [Concomitant]
     Indication: HYPERLIPIDAEMIA
     Dosage: 40 MG/DAILY
  9. OLMESARTAN MEDOXOMIL [Concomitant]
     Indication: HYPERTENSION
     Dosage: 20 MG/DAILY
  10. INSULIN [Concomitant]
     Indication: DIABETES MELLITUS
  11. VASEXTEN [Concomitant]
     Indication: HYPERTENSION
     Dosage: 20 MG/DAILY
  12. OMEPRAZOLE [Concomitant]
     Dosage: 20 MG/DAILY

REACTIONS (2)
  - HYPONATRAEMIA [None]
  - MALAISE [None]
